FAERS Safety Report 9978437 (Version 1)
Quarter: 2014Q1

REPORT INFORMATION
  Report Type: Report from Study
  Country: US (occurrence: US)
  Receive Date: 20140306
  Receipt Date: 20140306
  Transmission Date: 20141002
  Serious: Yes (Hospitalization)
  Sender: FDA-Public Use
  Company Number: US-ABBVIE-13P-163-1173228-00

PATIENT
  Age: 24 Year
  Sex: Male

DRUGS (26)
  1. HUMIRA [Suspect]
     Indication: CROHN^S DISEASE
     Dates: start: 20130909
  2. LANTUS [Concomitant]
     Indication: DIABETES MELLITUS
     Dosage: IN AM
     Route: 058
  3. LANTUS [Concomitant]
     Dosage: IN EVENING
     Route: 058
  4. NOVOLOG [Concomitant]
     Indication: DIABETES MELLITUS
     Dosage: 20 UNITS+S/S IN AM
     Route: 058
  5. NOVOLOG [Concomitant]
     Dosage: 40 UNITS+S/S IN AFTERNOON
     Route: 058
  6. NOVOLOG [Concomitant]
     Dosage: 40 UNITS+S/S IN EVENING
     Route: 058
  7. PROBIOTIC [Concomitant]
     Indication: CROHN^S DISEASE
  8. IRON [Concomitant]
     Indication: BLOOD IRON DECREASED
  9. VERAPAMIL [Concomitant]
     Indication: PRODUCT USED FOR UNKNOWN INDICATION
  10. METHOCARBAMOL [Concomitant]
     Indication: MUSCLE SPASMS
  11. MULTIVITAMIN [Concomitant]
     Indication: PRODUCT USED FOR UNKNOWN INDICATION
  12. VITAMIN D3 [Concomitant]
     Indication: VITAMIN D DECREASED
     Dosage: 3200 U DAILY
  13. GABAPENTIN [Concomitant]
     Indication: PARAESTHESIA
  14. GABAPENTIN [Concomitant]
     Indication: PAIN
  15. LISINOPRIL [Concomitant]
     Indication: HYPERTENSION
  16. LISINOPRIL [Concomitant]
     Indication: RENAL IMPAIRMENT
  17. MAGNESIUM [Concomitant]
     Indication: BLOOD MAGNESIUM DECREASED
  18. METHYLAMINE [Concomitant]
     Indication: CROHN^S DISEASE
  19. METHADONE [Concomitant]
     Indication: PAIN
  20. NORTRIPTYLINE [Concomitant]
     Indication: PAIN
  21. NYSTATIN [Concomitant]
     Indication: PRODUCT USED FOR UNKNOWN INDICATION
     Dosage: TOPICAL CREAM USED IN GROIN AREA
  22. NYSTATIN [Concomitant]
     Indication: CANDIDA INFECTION
     Dosage: LIQUID 1 TEASPOONFUL
  23. OMEPRAZOLE [Concomitant]
     Indication: GASTRIC DISORDER
  24. POTASSIUM [Concomitant]
     Indication: BLOOD POTASSIUM DECREASED
  25. PREDNISONE [Concomitant]
     Indication: CROHN^S DISEASE
     Dosage: IS SLOWLY TAPERING DOWN
  26. TESTOSTERONE [Concomitant]
     Indication: PRODUCT USED FOR UNKNOWN INDICATION
     Dosage: DAILY

REACTIONS (2)
  - Urinary tract infection [Recovered/Resolved]
  - Nephrolithiasis [Recovered/Resolved]
